FAERS Safety Report 8437608-2 (Version None)
Quarter: 2012Q2

REPORT INFORMATION
  Report Type: 
  Country: None (occurrence: None)
  Receive Date: 20120614
  Receipt Date: 20120419
  Transmission Date: 20120825
  Serious: No
  Sender: FDA-Public Use
  Company Number: US-AMGEN-USASP2012024851

PATIENT
  Age: 65 Year
  Sex: Female

DRUGS (7)
  1. NEXIUM [Concomitant]
     Dosage: UNK
  2. ONE-A-DAY [Concomitant]
  3. VITAMIN B-12 [Concomitant]
     Dosage: UNK
  4. ESTROGEN [Concomitant]
     Dosage: UNK
  5. PROLIA [Suspect]
     Indication: OSTEOPOROSIS POSTMENOPAUSAL
     Dosage: 60 MG, Q6MO
     Dates: start: 20120103
  6. PREDNISONE TAB [Concomitant]
     Dosage: UNK
  7. ANTIHYPERTENSIVES [Concomitant]
     Dosage: UNK

REACTIONS (1)
  - ASTHENIA [None]
